FAERS Safety Report 9752086 (Version 2)
Quarter: 2014Q1

REPORT INFORMATION
  Report Type: Report from Study
  Country: AU (occurrence: AU)
  Receive Date: 20131213
  Receipt Date: 20140128
  Transmission Date: 20141002
  Serious: Yes (Other)
  Sender: FDA-Public Use
  Company Number: PHHY2013AU145377

PATIENT
  Age: 76 Year
  Sex: Female
  Weight: 74 kg

DRUGS (12)
  1. ACLASTA [Suspect]
     Indication: OSTEOPOROTIC FRACTURE
     Dosage: 5 MG
     Route: 042
     Dates: start: 20100813
  2. ACLASTA [Suspect]
     Dosage: 5 MG
     Route: 042
     Dates: start: 20111017
  3. ACLASTA [Suspect]
     Dosage: 5 MG
     Route: 042
     Dates: start: 20121113
  4. ACLASTA [Suspect]
     Dosage: 5 MG
     Route: 042
     Dates: start: 20131210
  5. ATENOLOL [Concomitant]
     Dosage: UNK UKN, UNK
  6. DIGOXIN [Concomitant]
     Dosage: UNK UKN, UNK
  7. LIPITOR [Concomitant]
     Dosage: UNK UKN, UNK
  8. LASILIX [Concomitant]
     Dosage: UNK UKN, UNK
  9. OSTEOLIS [Concomitant]
     Dosage: UNK UKN, UNK
  10. OSTEO [Concomitant]
     Dosage: UNK UKN, UNK
  11. SOMAC [Concomitant]
     Dosage: UNK UKN, UNK
  12. MANEVAC [Concomitant]
     Dosage: UNK UKN, UNK

REACTIONS (3)
  - Fall [Unknown]
  - Wrist fracture [Recovered/Resolved with Sequelae]
  - Radius fracture [Unknown]
